FAERS Safety Report 10253736 (Version 2)
Quarter: 2014Q2

REPORT INFORMATION
  Report Type: Spontaneous
  Country: US (occurrence: IT)
  Receive Date: 20140623
  Receipt Date: 20140623
  Transmission Date: 20141212
  Serious: No
  Sender: FDA-Public Use
  Company Number: IT-FRI-1000065755

PATIENT
  Age: 44 Year
  Sex: Female

DRUGS (3)
  1. ASENAPINE [Suspect]
     Indication: BIPOLAR DISORDER
     Dosage: 10 MG
     Route: 060
     Dates: start: 20140224, end: 20140224
  2. OLANZAPINE [Concomitant]
     Indication: BIPOLAR DISORDER
     Route: 048
     Dates: start: 20140219
  3. VALPROATE SODIUM [Concomitant]
     Indication: BIPOLAR DISORDER
     Dates: start: 20140219

REACTIONS (3)
  - Oral mucosal erythema [Recovered/Resolved]
  - Lip oedema [Recovered/Resolved]
  - Tongue oedema [Recovered/Resolved]
